FAERS Safety Report 16087640 (Version 2)
Quarter: 2019Q3

REPORT INFORMATION
  Report Type: Spontaneous
  Country: GB (occurrence: GB)
  Receive Date: 20190319
  Receipt Date: 20190907
  Transmission Date: 20191004
  Serious: Yes (Death, Hospitalization, Other)
  Sender: FDA-Public Use
  Company Number: GB-ABBVIE-19K-167-2690058-00

PATIENT
  Age: 79 Year
  Sex: Female

DRUGS (1)
  1. HUMIRA [Suspect]
     Active Substance: ADALIMUMAB
     Indication: RHEUMATOID ARTHRITIS
     Route: 058
     Dates: end: 201806

REACTIONS (21)
  - Thoracic vertebral fracture [Unknown]
  - Escherichia infection [Unknown]
  - Immunodeficiency [Unknown]
  - Pleural effusion [Unknown]
  - Spinal fracture [Unknown]
  - Decreased appetite [Unknown]
  - Arthritis [Unknown]
  - Infection [Unknown]
  - Pain [Unknown]
  - Lower respiratory tract infection [Unknown]
  - Alopecia [Unknown]
  - Organising pneumonia [Fatal]
  - Rales [Unknown]
  - Back pain [Unknown]
  - Pneumonia [Fatal]
  - Malaise [Unknown]
  - Dyspnoea [Unknown]
  - Peripheral swelling [Unknown]
  - General physical condition abnormal [Unknown]
  - Multiple-drug resistance [Unknown]
  - C-reactive protein increased [Unknown]

NARRATIVE: CASE EVENT DATE: 2018
